FAERS Safety Report 11078047 (Version 2)
Quarter: 2015Q2

REPORT INFORMATION
  Report Type: Spontaneous
  Country: IT (occurrence: IT)
  Receive Date: 20150430
  Receipt Date: 20150506
  Transmission Date: 20150821
  Serious: Yes (Other)
  Sender: FDA-Public Use
  Company Number: IT-TEVA-558529ACC

PATIENT
  Age: 49 Year
  Sex: Male

DRUGS (4)
  1. DESAMETASONE FOSFATO HOSPIRA - 4MG/ML SOLUZIONE INIETTABILE [Concomitant]
     Active Substance: DEXAMETHASONE SODIUM PHOSPHATE
     Indication: ALLERGY PROPHYLAXIS
     Dosage: 8 MG
     Route: 042
     Dates: start: 20150324, end: 20150414
  2. GRANISETRON B. BRAUN [Concomitant]
     Indication: PROPHYLAXIS OF NAUSEA AND VOMITING
     Dosage: 3 MG, CONCENTRATE FOR SOLUTION FOR INJECTION
     Route: 042
     Dates: start: 20150324, end: 20150414
  3. CARBOPLATINO TEVA - TEVA PHARMA B.V [Suspect]
     Active Substance: CARBOPLATIN
     Indication: SQUAMOUS CELL CARCINOMA
     Dosage: 700 MG CYCLICAL, CONCENTRATE FOR SOLUTION FOR INFUSION
     Dates: start: 20150324, end: 20150414
  4. ESOMEPRAZOLO SUN [Concomitant]
     Indication: GASTRITIS PROPHYLAXIS
     Dosage: 40 MG
     Route: 042
     Dates: start: 20150324, end: 20150414

REACTIONS (6)
  - Hyperhidrosis [Recovered/Resolved]
  - Loss of consciousness [Recovered/Resolved]
  - Abdominal pain [Recovered/Resolved]
  - Feeling hot [Recovered/Resolved]
  - Psychomotor hyperactivity [Recovered/Resolved]
  - Pruritus generalised [Recovered/Resolved]

NARRATIVE: CASE EVENT DATE: 20150414
